FAERS Safety Report 9291759 (Version 1)
Quarter: 2013Q2

REPORT INFORMATION
  Report Type: Spontaneous
  Country: US (occurrence: US)
  Receive Date: 20130516
  Receipt Date: 20130516
  Transmission Date: 20140414
  Serious: No
  Sender: FDA-Public Use
  Company Number: US-009507513-1305USA001914

PATIENT
  Age: 15 Year
  Sex: Female
  Weight: 42.63 kg

DRUGS (1)
  1. NUVARING [Suspect]
     Indication: CONTRACEPTION
     Dosage: 3 WEEK RING
     Route: 067
     Dates: start: 201205, end: 201301

REACTIONS (2)
  - Vaginal haemorrhage [Recovered/Resolved]
  - Breast mass [Not Recovered/Not Resolved]
